FAERS Safety Report 15294474 (Version 2)
Quarter: 2018Q3

REPORT INFORMATION
  Report Type: Spontaneous
  Country: US (occurrence: US)
  Receive Date: 20180820
  Receipt Date: 20180901
  Transmission Date: 20181010
  Serious: Yes (Death, Other)
  Sender: FDA-Public Use
  Company Number: US-AUROBINDO-AUR-APL-2018-041916

PATIENT
  Age: 34 Year
  Sex: Male

DRUGS (3)
  1. LOPERAMIDE [Suspect]
     Active Substance: LOPERAMIDE
     Indication: PRODUCT USED FOR UNKNOWN INDICATION
     Dosage: 25 TO 30 PILLS OF 2 MG AT A TIME
     Route: 065
  2. LOPERAMIDE [Suspect]
     Active Substance: LOPERAMIDE
     Dosage: ESCALATED UP TO 200 PILLS OF
     Route: 065
  3. LOPERAMIDE [Suspect]
     Active Substance: LOPERAMIDE
     Dosage: 144 MILLIGRAM (72 PILLS)
     Route: 065

REACTIONS (11)
  - Mydriasis [Unknown]
  - Toxicity to various agents [Fatal]
  - Rhinorrhoea [Unknown]
  - Skin burning sensation [Unknown]
  - Yawning [Unknown]
  - Abdominal pain [Unknown]
  - Drug withdrawal syndrome [Unknown]
  - Lacrimation increased [Unknown]
  - Diarrhoea [Unknown]
  - Irritability [Unknown]
  - Drug use disorder [Fatal]
